FAERS Safety Report 7727669-8 (Version None)
Quarter: 2011Q3

REPORT INFORMATION
  Report Type: 
  Country: None (occurrence: None)
  Receive Date: 20110902
  Receipt Date: 20110824
  Transmission Date: 20111222
  Serious: Yes (Other)
  Sender: FDA-Public Use
  Company Number: US-ASTRAZENECA-2011SE50827

PATIENT
  Age: 60 Year
  Sex: Male
  Weight: 168 kg

DRUGS (4)
  1. SEROQUEL [Suspect]
     Indication: BIPOLAR DISORDER
     Route: 048
  2. ASPIRIN [Concomitant]
  3. CARBEDILOL [Concomitant]
  4. SIMVASTATIN [Concomitant]

REACTIONS (4)
  - HERNIA [None]
  - DYSSTASIA [None]
  - DRUG DOSE OMISSION [None]
  - INSOMNIA [None]
